FAERS Safety Report 7900500-3 (Version None)
Quarter: 2011Q4

REPORT INFORMATION
  Report Type: 
  Country: None (occurrence: None)
  Receive Date: 20111108
  Receipt Date: 20111025
  Transmission Date: 20120403
  Serious: Yes (Hospitalization)
  Sender: FDA-Public Use
  Company Number: US-MYLANLABS-2011S1022489

PATIENT
  Age: 34 Year
  Sex: Male

DRUGS (5)
  1. METOPROLOL [Suspect]
     Indication: OVERDOSE
     Route: 048
  2. QUETIAPINE [Suspect]
     Indication: OVERDOSE
     Route: 048
  3. INSULIN [Suspect]
     Dosage: 70-700 IU/H
     Route: 041
  4. DEXTROSE [Concomitant]
     Dosage: TOTAL DOSE ACCORDING TO TABLE: 475G
     Route: 065
  5. INSULIN [Suspect]
     Indication: CARDIOGENIC SHOCK
     Route: 040

REACTIONS (5)
  - OVERDOSE [None]
  - HYPOGLYCAEMIA [None]
  - CARDIOGENIC SHOCK [None]
  - HYPOTENSION [None]
  - HYPOKALAEMIA [None]
